FAERS Safety Report 14662093 (Version 2)
Quarter: 2018Q2

REPORT INFORMATION
  Report Type: Report from Study
  Country: US (occurrence: US)
  Receive Date: 20180321
  Receipt Date: 20180502
  Transmission Date: 20180711
  Serious: Yes (Hospitalization, Other)
  Sender: FDA-Public Use
  Company Number: US-AMGEN-USASP2018035325

PATIENT
  Age: 61 Year
  Sex: Female

DRUGS (6)
  1. REPATHA [Suspect]
     Active Substance: EVOLOCUMAB
     Indication: PRODUCT USED FOR UNKNOWN INDICATION
     Dosage: 140 MG, Q2WK
     Route: 065
  2. BYDUREON [Concomitant]
     Active Substance: EXENATIDE
     Dosage: UNK, QWK
  3. LANSOPRAZOLE. [Concomitant]
     Active Substance: LANSOPRAZOLE
  4. URSODIOL. [Concomitant]
     Active Substance: URSODIOL
     Dosage: UNK UNK, BID
  5. LISINOPRIL. [Concomitant]
     Active Substance: LISINOPRIL
  6. TENEX [Concomitant]
     Active Substance: GUANFACINE HYDROCHLORIDE

REACTIONS (15)
  - Generalised oedema [Unknown]
  - Rash erythematous [Not Recovered/Not Resolved]
  - Weight increased [Recovering/Resolving]
  - Tremor [Recovering/Resolving]
  - Arthralgia [Unknown]
  - Gait inability [Unknown]
  - Dehydration [Unknown]
  - Nausea [Recovered/Resolved]
  - Sinus congestion [Not Recovered/Not Resolved]
  - Dyspnoea [Recovering/Resolving]
  - Blood glucose increased [Recovering/Resolving]
  - Peripheral swelling [Recovering/Resolving]
  - Blood pressure systolic increased [Unknown]
  - Abdominal distension [Recovering/Resolving]
  - Constipation [Recovered/Resolved]

NARRATIVE: CASE EVENT DATE: 2018
